FAERS Safety Report 8322258-9 (Version None)
Quarter: 2012Q2

REPORT INFORMATION
  Report Type: 
  Country: None (occurrence: None)
  Receive Date: 20120430
  Receipt Date: 20120425
  Transmission Date: 20120825
  Serious: Yes (Hospitalization, Other)
  Sender: FDA-Public Use
  Company Number: US-GILEAD-2012-0052083

PATIENT
  Sex: Female

DRUGS (4)
  1. LETAIRIS [Suspect]
     Indication: DIASTOLIC DYSFUNCTION
  2. LETAIRIS [Suspect]
     Indication: VENOOCCLUSIVE DISEASE
  3. LETAIRIS [Suspect]
     Indication: PULMONARY ARTERIAL PRESSURE INCREASED
  4. LETAIRIS [Suspect]
     Indication: PULMONARY HYPERTENSION
     Dosage: 5 MG, UNK
     Route: 048
     Dates: start: 20120222

REACTIONS (7)
  - PULMONARY OEDEMA [None]
  - PULMONARY VENO-OCCLUSIVE DISEASE [None]
  - PULMONARY HYPERTENSION [None]
  - HYPOXIA [None]
  - COR PULMONALE ACUTE [None]
  - DYSPNOEA [None]
  - RESPIRATORY DISTRESS [None]
